FAERS Safety Report 19411202 (Version 1)
Quarter: 2021Q2

REPORT INFORMATION
  Report Type: Spontaneous
  Country: US (occurrence: US)
  Receive Date: 20210614
  Receipt Date: 20210614
  Transmission Date: 20210717
  Serious: No
  Sender: FDA-Public Use
  Company Number: None

PATIENT
  Age: 74 Year
  Sex: Male
  Weight: 108.86 kg

DRUGS (1)
  1. ERTAPENEM (ERTAPENEM 1GM/VIL INJ) [Suspect]
     Active Substance: ERTAPENEM
     Indication: ARTHRITIS INFECTIVE
     Dosage: ?          OTHER ROUTE:IV?
     Dates: start: 20201005, end: 20201009

REACTIONS (2)
  - Rash [None]
  - Eosinophilia [None]

NARRATIVE: CASE EVENT DATE: 20201010
